FAERS Safety Report 26019002 (Version 3)
Quarter: 2025Q4

REPORT INFORMATION
  Report Type: Spontaneous
  Country: EU (occurrence: EU)
  Receive Date: 20251110
  Receipt Date: 20251217
  Transmission Date: 20260117
  Serious: Yes (Other)
  Sender: HIKMA
  Company Number: None

PATIENT
  Age: 24 Year
  Sex: Male

DRUGS (5)
  1. BLEOMYCIN [Suspect]
     Active Substance: BLEOMYCIN SULFATE
     Indication: Testicular neoplasm
     Dosage: UNK, QOW
     Route: 042
     Dates: start: 20250902
  2. CISPLATIN [Suspect]
     Active Substance: CISPLATIN
     Dosage: NOT APPLICABLE (COMPANY^S SUSPECT PRODUCT NOT ADMINISTERED)
  3. ETOPOSIDE [Suspect]
     Active Substance: ETOPOSIDE
     Dosage: NOT APPLICABLE (COMPANY^S SUSPECT PRODUCT NOT ADMINISTERED)
  4. ETOPOSIDE [Suspect]
     Active Substance: ETOPOSIDE
     Indication: Testicular neoplasm
     Dosage: UNK, QOW
     Route: 042
     Dates: start: 20250902
  5. CISPLATIN [Suspect]
     Active Substance: CISPLATIN
     Indication: Testicular neoplasm
     Dosage: UNK, QOW
     Route: 042
     Dates: start: 20250902

REACTIONS (9)
  - Constipation [Unknown]
  - Cough [Unknown]
  - Decreased appetite [Unknown]
  - Cancer fatigue [Unknown]
  - Dyspnoea exertional [Unknown]
  - Neutropenia [Unknown]
  - Vomiting [Unknown]
  - Rectal haemorrhage [Unknown]
  - Rash [Unknown]

NARRATIVE: CASE EVENT DATE: 20250902
